FAERS Safety Report 12600637 (Version 1)
Quarter: 2016Q3

REPORT INFORMATION
  Report Type: Spontaneous
  Country: US (occurrence: US)
  Receive Date: 20160727
  Receipt Date: 20160727
  Transmission Date: 20161109
  Serious: Yes (Life-Threatening, Other)
  Sender: FDA-Public Use
  Company Number: GXBR2016US002320

PATIENT
  Sex: Female

DRUGS (1)
  1. GLATOPA [Suspect]
     Active Substance: GLATIRAMER ACETATE
     Indication: PRODUCT USED FOR UNKNOWN INDICATION
     Dosage: 20 MG/ML, UNK
     Route: 065

REACTIONS (8)
  - Tinnitus [Unknown]
  - Chest pain [Unknown]
  - Asthenia [Unknown]
  - Malaise [Unknown]
  - Mobility decreased [Unknown]
  - Feeling abnormal [Unknown]
  - Blindness [Unknown]
  - Muscular weakness [Unknown]
